FAERS Safety Report 19090112 (Version 1)
Quarter: 2021Q2

REPORT INFORMATION
  Report Type: Spontaneous
  Country: US (occurrence: US)
  Receive Date: 20210404
  Receipt Date: 20210404
  Transmission Date: 20210717
  Serious: Yes (Other)
  Sender: FDA-Public Use
  Company Number: US-TEVA-2021-US-1896948

PATIENT
  Sex: Female

DRUGS (2)
  1. CLONAZEPAM TEVA [Suspect]
     Active Substance: CLONAZEPAM
     Route: 048
  2. CLONAZEPAM TEVA [Suspect]
     Active Substance: CLONAZEPAM
     Route: 048
     Dates: start: 20210323

REACTIONS (12)
  - Epilepsy [Unknown]
  - Tremor [Unknown]
  - Withdrawal syndrome [Unknown]
  - Drug ineffective [Unknown]
  - Insomnia [Unknown]
  - Loss of personal independence in daily activities [Unknown]
  - Nervousness [Unknown]
  - Seizure [Unknown]
  - Headache [Unknown]
  - Feeling abnormal [Unknown]
  - Impaired driving ability [Unknown]
  - Movement disorder [Unknown]

NARRATIVE: CASE EVENT DATE: 20210323
